FAERS Safety Report 23559181 (Version 1)
Quarter: 2024Q1

REPORT INFORMATION
  Report Type: Report from Study
  Country: TH (occurrence: TH)
  Receive Date: 20240223
  Receipt Date: 20240223
  Transmission Date: 20240410
  Serious: Yes (Other)
  Sender: FDA-Public Use
  Company Number: TH-SUN PHARMACEUTICAL INDUSTRIES LTD-2024R1-432696

PATIENT
  Age: 44 Year
  Sex: Female
  Weight: 54.1 kg

DRUGS (1)
  1. LITHIUM [Suspect]
     Active Substance: LITHIUM
     Indication: Schizoaffective disorder
     Dosage: 900 MILLIGRAM, DAILY
     Route: 065

REACTIONS (4)
  - Chronic kidney disease [Unknown]
  - Toxicity to various agents [Unknown]
  - Tremor [Unknown]
  - Dysarthria [Unknown]
